FAERS Safety Report 5582869-0 (Version None)
Quarter: 2008Q1

REPORT INFORMATION
  Report Type: 
  Country: None (occurrence: None)
  Receive Date: 20080107
  Receipt Date: 20071228
  Transmission Date: 20080703
  Serious: Yes (Hospitalization)
  Sender: FDA-Public Use
  Company Number: US-ROCHE-505133

PATIENT
  Age: 53 Year
  Sex: Female
  Weight: 116.1 kg

DRUGS (7)
  1. PEGASYS [Suspect]
     Indication: HEPATITIS C
     Route: 065
     Dates: start: 20030901, end: 20040901
  2. PEGASYS [Suspect]
     Route: 065
     Dates: start: 20041201, end: 20051201
  3. PEGASYS [Suspect]
     Dosage: REPORTED AS ^TAPERED PEGASYS MONOTHERAPY FOR 6 MONTHS.^
     Route: 065
     Dates: start: 20060101, end: 20060701
  4. COPEGUS [Suspect]
     Indication: HEPATITIS C
     Route: 065
     Dates: start: 20030901, end: 20040901
  5. COPEGUS [Suspect]
     Route: 065
     Dates: start: 20041201, end: 20051201
  6. HYDROCHLOROTHIAZIDE [Concomitant]
  7. UNSPECIFIED DRUG [Concomitant]
     Dosage: DRUG REPORTED AS ^TENORIAM.^

REACTIONS (2)
  - HEPATITIS C [None]
  - THROMBOSIS [None]
